FAERS Safety Report 5131911-X (Version None)
Quarter: 2006Q4

REPORT INFORMATION
  Report Type: 
  Country: None (occurrence: None)
  Receive Date: 20061016
  Receipt Date: 20061003
  Transmission Date: 20070319
  Serious: Yes (Hospitalization, Other)
  Sender: FDA-Public Use
  Company Number: 2006120445

PATIENT
  Sex: Male

DRUGS (1)
  1. LIPITOR [Suspect]
     Dates: start: 20031218

REACTIONS (10)
  - BALANCE DISORDER [None]
  - BLINDNESS UNILATERAL [None]
  - CARDIOMYOPATHY [None]
  - DYSPHAGIA [None]
  - FEELING ABNORMAL [None]
  - HEART RATE DECREASED [None]
  - MENTAL DISORDER [None]
  - NECK PAIN [None]
  - RENAL DISORDER [None]
  - VISUAL ACUITY REDUCED [None]
